FAERS Safety Report 16174058 (Version 1)
Quarter: 2019Q2

REPORT INFORMATION
  Report Type: Spontaneous
  Country: US (occurrence: US)
  Receive Date: 20190409
  Receipt Date: 20190409
  Transmission Date: 20190711
  Serious: No
  Sender: FDA-Public Use
  Company Number: US-MYLANLABS-2019M1027330

PATIENT
  Sex: Female
  Weight: 70.76 kg

DRUGS (1)
  1. FENTANYL TRANSDERMAL SYSTEM [Suspect]
     Active Substance: FENTANYL
     Indication: RADICULOPATHY
     Dosage: UNK
     Route: 062

REACTIONS (4)
  - Wrong technique in product usage process [Unknown]
  - Physical product label issue [Unknown]
  - No adverse event [Unknown]
  - Product adhesion issue [Unknown]
